FAERS Safety Report 9983446 (Version 3)
Quarter: 2014Q3

REPORT INFORMATION
  Report Type: Report from Study
  Country: CN (occurrence: CN)
  Receive Date: 20140307
  Receipt Date: 20140713
  Transmission Date: 20150326
  Serious: Yes (Death)
  Sender: FDA-Public Use
  Company Number: PHHY2014CN027738

PATIENT
  Sex: Male

DRUGS (2)
  1. GLIVEC [Suspect]
     Active Substance: IMATINIB MESYLATE
     Indication: NEOPLASM
  2. GLIVEC [Suspect]
     Active Substance: IMATINIB MESYLATE
     Indication: GASTROINTESTINAL STROMAL TUMOUR
     Dosage: 400 MG, ONCE A DAY
     Route: 048
     Dates: start: 20080101

REACTIONS (5)
  - Renal failure [Fatal]
  - Malignant neoplasm progression [Fatal]
  - Hepatic failure [Fatal]
  - Gastrointestinal stromal tumour [Fatal]
  - Treatment failure [Unknown]
